FAERS Safety Report 15281722 (Version 1)
Quarter: 2018Q3

REPORT INFORMATION
  Report Type: Report from Study
  Country: US (occurrence: US)
  Receive Date: 20180815
  Receipt Date: 20180815
  Transmission Date: 20181010
  Serious: Yes (Hospitalization)
  Sender: FDA-Public Use
  Company Number: US-JNJFOC-20180103198

PATIENT
  Age: 20 Year
  Sex: Female
  Weight: 205.93 kg

DRUGS (3)
  1. ENTYVIO [Concomitant]
     Active Substance: VEDOLIZUMAB
     Route: 065
  2. REMICADE [Suspect]
     Active Substance: INFLIXIMAB
     Indication: INFLAMMATORY BOWEL DISEASE
     Route: 042
     Dates: start: 20150729, end: 20151119
  3. REMICADE [Suspect]
     Active Substance: INFLIXIMAB
     Indication: INFLAMMATORY BOWEL DISEASE
     Route: 042
     Dates: start: 20090207, end: 20101208

REACTIONS (2)
  - Maternal exposure before pregnancy [Recovered/Resolved]
  - Gastric prolapse [Not Recovered/Not Resolved]

NARRATIVE: CASE EVENT DATE: 20180731
